FAERS Safety Report 9794253 (Version 2)
Quarter: 2014Q1

REPORT INFORMATION
  Report Type: Spontaneous
  Country: US (occurrence: US)
  Receive Date: 20140102
  Receipt Date: 20140203
  Transmission Date: 20141002
  Serious: No
  Sender: FDA-Public Use
  Company Number: US-AMGEN-USASP2013088423

PATIENT
  Age: 51 Year
  Sex: Male
  Weight: 122.45 kg

DRUGS (1)
  1. ENBREL [Suspect]
     Indication: PSORIASIS
     Dosage: 50 MG, 2 TIMES/WK
     Route: 065
     Dates: start: 20131117, end: 20131209

REACTIONS (3)
  - Cardiac assistance device user [Recovered/Resolved]
  - Urticaria [Recovered/Resolved]
  - Muscle spasms [Recovered/Resolved]
